FAERS Safety Report 15653261 (Version 2)
Quarter: 2018Q4

REPORT INFORMATION
  Report Type: Report from Study
  Country: None (occurrence: FR)
  Receive Date: 20181123
  Receipt Date: 20181204
  Transmission Date: 20190205
  Serious: Yes (Other)
  Sender: FDA-Public Use
  Company Number: FR-ABBVIE-18K-056-2566925-00

PATIENT
  Age: 30 Year
  Sex: Female
  Weight: 75 kg

DRUGS (9)
  1. CLARELUX [Concomitant]
     Active Substance: CLOBETASOL PROPIONATE
     Dates: start: 20161205, end: 20170320
  2. CLARELUX [Concomitant]
     Active Substance: CLOBETASOL PROPIONATE
     Indication: PRODUCT USED FOR UNKNOWN INDICATION
     Dates: start: 20160127, end: 20160912
  3. AERIUS (DESLORATADINE) [Concomitant]
     Active Substance: DESLORATADINE
     Indication: PRODUCT USED FOR UNKNOWN INDICATION
     Dates: start: 20161205, end: 20170320
  4. HUMIRA [Suspect]
     Active Substance: ADALIMUMAB
     Route: 058
     Dates: start: 20161212, end: 20180919
  5. DAIVOBET [Concomitant]
     Active Substance: BETAMETHASONE DIPROPIONATE\CALCIPOTRIENE
     Dates: start: 20171002, end: 20180326
  6. OPTIMIZETTE [Concomitant]
     Active Substance: DESOGESTREL
     Indication: PRODUCT USED FOR UNKNOWN INDICATION
     Dates: end: 20180919
  7. HUMIRA [Suspect]
     Active Substance: ADALIMUMAB
     Indication: PSORIASIS
     Route: 058
     Dates: start: 20161205, end: 20161212
  8. DAIVOBET [Concomitant]
     Active Substance: BETAMETHASONE DIPROPIONATE\CALCIPOTRIENE
     Indication: PRODUCT USED FOR UNKNOWN INDICATION
     Dates: end: 20170320
  9. MYCOSTER [Concomitant]
     Active Substance: CICLOPIROX\CICLOPIROX OLAMINE
     Indication: PRODUCT USED FOR UNKNOWN INDICATION
     Dates: start: 20160912, end: 20161017

REACTIONS (4)
  - Abortion [Unknown]
  - Exposure during pregnancy [Unknown]
  - Vulvovaginal candidiasis [Recovered/Resolved]
  - Vaginitis gardnerella [Recovered/Resolved]

NARRATIVE: CASE EVENT DATE: 2017
